FAERS Safety Report 25691811 (Version 1)
Quarter: 2025Q3

REPORT INFORMATION
  Report Type: Report from Study
  Country: CA (occurrence: CA)
  Receive Date: 20250818
  Receipt Date: 20250818
  Transmission Date: 20251020
  Serious: Yes (Other)
  Sender: ALEXION PHARMACEUTICALS
  Company Number: CA-AstraZeneca-CH-00931745A

PATIENT
  Age: 77 Year
  Sex: Female

DRUGS (6)
  1. TEZEPELUMAB [Suspect]
     Active Substance: TEZEPELUMAB
     Indication: Asthma
  2. TEZEPELUMAB [Suspect]
     Active Substance: TEZEPELUMAB
  3. BREO ELLIPTA [Concomitant]
     Active Substance: FLUTICASONE FUROATE\VILANTEROL TRIFENATATE
     Dosage: 1 DOSAGE FORM, QD
     Dates: start: 2018
  4. INCRUSE ELLIPTA [Concomitant]
     Active Substance: UMECLIDINIUM BROMIDE
     Route: 065
  5. PREDNISONE [Concomitant]
     Active Substance: PREDNISONE
     Route: 065
  6. VENTOLIN [Concomitant]
     Active Substance: ALBUTEROL SULFATE
     Route: 065
     Dates: start: 2018

REACTIONS (1)
  - Headache [Unknown]
